FAERS Safety Report 15606630 (Version 1)
Quarter: 2018Q4

REPORT INFORMATION
  Report Type: Spontaneous
  Country: US (occurrence: US)
  Receive Date: 20181112
  Receipt Date: 20181112
  Transmission Date: 20190205
  Serious: No
  Sender: FDA-Public Use
  Company Number: US-SUNOVION-2018SUN004291

PATIENT
  Sex: Female

DRUGS (7)
  1. LUNESTA [Suspect]
     Active Substance: ESZOPICLONE
     Dosage: 2 MG, UNK
     Route: 048
  2. LUNESTA [Suspect]
     Active Substance: ESZOPICLONE
     Dosage: 3 MG, UNK
     Dates: start: 20181025
  3. AMBIEN [Suspect]
     Active Substance: ZOLPIDEM TARTRATE
  4. LUNESTA [Suspect]
     Active Substance: ESZOPICLONE
     Dosage: 3 MG, UNK
     Route: 048
     Dates: end: 201808
  5. LUNESTA [Suspect]
     Active Substance: ESZOPICLONE
     Dosage: 3 MG, UNK
     Dates: start: 201809, end: 201809
  6. ESZOPICLONE. [Suspect]
     Active Substance: ESZOPICLONE
     Indication: INSOMNIA
     Dosage: UNK
     Route: 048
     Dates: start: 201808, end: 201808
  7. LUNESTA [Suspect]
     Active Substance: ESZOPICLONE
     Indication: INSOMNIA
     Dosage: 1 MG, UNK
     Route: 048

REACTIONS (5)
  - Drug ineffective [Unknown]
  - Abnormal dreams [Unknown]
  - Insomnia [Unknown]
  - Headache [Unknown]
  - Product dose omission [Unknown]

NARRATIVE: CASE EVENT DATE: 201809
